FAERS Safety Report 9791657 (Version 2)
Quarter: 2014Q1

REPORT INFORMATION
  Report Type: Spontaneous
  Country: US (occurrence: US)
  Receive Date: 20140102
  Receipt Date: 20140319
  Transmission Date: 20141002
  Serious: Yes (Hospitalization, Other)
  Sender: FDA-Public Use
  Company Number: US-BAXTER-2013BAX052803

PATIENT
  Age: 71 Year
  Sex: Female

DRUGS (4)
  1. DIANEAL LOW CALCIUM [Suspect]
     Indication: RENAL FAILURE CHRONIC
     Route: 033
  2. DIANEAL LOW CALCIUM [Suspect]
     Dosage: LAST FILL
     Route: 033
  3. DIANEAL LOW CALCIUM (ULTRABAG) [Suspect]
     Indication: RENAL FAILURE CHRONIC
     Route: 033
  4. NORCO [Suspect]
     Indication: PAIN
     Dosage: 2 DOSES
     Route: 065
     Dates: start: 20131212, end: 20131213

REACTIONS (7)
  - Fall [Not Recovered/Not Resolved]
  - Lethargy [Not Recovered/Not Resolved]
  - Kidney infection [Recovered/Resolved]
  - Gastrointestinal infection [Recovered/Resolved]
  - Anaemia [Not Recovered/Not Resolved]
  - Balance disorder [Unknown]
  - Pain [Unknown]
